FAERS Safety Report 12304175 (Version 3)
Quarter: 2016Q3

REPORT INFORMATION
  Report Type: Spontaneous
  Country: US (occurrence: US)
  Receive Date: 20160426
  Receipt Date: 20160829
  Transmission Date: 20161109
  Serious: No
  Sender: FDA-Public Use
  Company Number: US-JNJFOC-20160326398

PATIENT
  Age: 7 Year
  Sex: Male
  Weight: 19.96 kg

DRUGS (2)
  1. INTUNIV [Concomitant]
     Active Substance: GUANFACINE HYDROCHLORIDE
     Indication: ATTENTION DEFICIT/HYPERACTIVITY DISORDER
     Route: 048
  2. CONCERTA [Suspect]
     Active Substance: METHYLPHENIDATE HYDROCHLORIDE
     Indication: ATTENTION DEFICIT/HYPERACTIVITY DISORDER
     Route: 048
     Dates: start: 20160326

REACTIONS (8)
  - Distractibility [Unknown]
  - Abnormal behaviour [Not Recovered/Not Resolved]
  - Social avoidant behaviour [Unknown]
  - Psychomotor hyperactivity [Recovered/Resolved]
  - Head banging [Recovered/Resolved]
  - Impulsive behaviour [Unknown]
  - Disturbance in attention [Unknown]
  - Psychotic disorder [Unknown]

NARRATIVE: CASE EVENT DATE: 20160326
